FAERS Safety Report 20562673 (Version 2)
Quarter: 2022Q1

REPORT INFORMATION
  Report Type: Spontaneous
  Country: JP (occurrence: JP)
  Receive Date: 20220307
  Receipt Date: 20220329
  Transmission Date: 20220423
  Serious: Yes (Other)
  Sender: FDA-Public Use
  Company Number: JP-CHUGAI-2022007280

PATIENT
  Age: 78 Year
  Sex: Female

DRUGS (3)
  1. TECENTRIQ [Suspect]
     Active Substance: ATEZOLIZUMAB
     Indication: Small cell lung cancer
     Dosage: 1200 MILLIGRAM, ONCE/3WEEKS
     Route: 041
     Dates: start: 20200609, end: 20220117
  2. ETOPOSIDE [Concomitant]
     Active Substance: ETOPOSIDE
     Indication: Small cell lung cancer
     Dosage: UNK
     Route: 041
  3. CARBOPLATIN [Concomitant]
     Active Substance: CARBOPLATIN
     Indication: Small cell lung cancer
     Dosage: UNK
     Route: 041

REACTIONS (1)
  - Hyperglycaemia [Not Recovered/Not Resolved]

NARRATIVE: CASE EVENT DATE: 20220217
